FAERS Safety Report 14683030 (Version 1)
Quarter: 2018Q1

REPORT INFORMATION
  Report Type: Spontaneous
  Country: US (occurrence: US)
  Receive Date: 20180327
  Receipt Date: 20180327
  Transmission Date: 20180509
  Serious: No
  Sender: FDA-Public Use
  Company Number: US-TEVA-2018-US-875128

PATIENT
  Sex: Female

DRUGS (5)
  1. FOLIC ACID. [Concomitant]
     Active Substance: FOLIC ACID
  2. CHLORTHALIDONE 25 MG [Concomitant]
     Active Substance: CHLORTHALIDONE
  3. METHOTREXATE. [Suspect]
     Active Substance: METHOTREXATE
     Indication: IRIS DISORDER
  4. PLAQUENIL [Concomitant]
     Active Substance: HYDROXYCHLOROQUINE SULFATE
  5. TAZTIA XT 240 MG [Concomitant]

REACTIONS (1)
  - Inappropriate schedule of drug administration [Unknown]
